FAERS Safety Report 7423617-9 (Version None)
Quarter: 2011Q2

REPORT INFORMATION
  Report Type: 
  Country: None (occurrence: None)
  Receive Date: 20110413
  Receipt Date: 20110413
  Transmission Date: 20111010
  Serious: No
  Sender: FDA-Public Use
  Company Number: None

PATIENT
  Sex: Male
  Weight: 104.3273 kg

DRUGS (1)
  1. FENTANYL [Suspect]
     Dosage: 300MG PATCH Q 72 HRS DERMAL

REACTIONS (2)
  - HALLUCINATION [None]
  - AMNESIA [None]
